FAERS Safety Report 4849617-0 (Version None)
Quarter: 2005Q4

REPORT INFORMATION
  Report Type: 
  Country: None (occurrence: None)
  Receive Date: 20051115
  Receipt Date: 20050809
  Transmission Date: 20060501
  Serious: No
  Sender: FDA-Public Use
  Company Number: S05-USA-03977-01

PATIENT
  Sex: Male

DRUGS (1)
  1. NAMENDA [Suspect]
     Route: 065

REACTIONS (2)
  - DYSGEUSIA [None]
  - WEIGHT DECREASED [None]
